FAERS Safety Report 8298340-1 (Version None)
Quarter: 2012Q2

REPORT INFORMATION
  Report Type: 
  Country: None (occurrence: None)
  Receive Date: 20120419
  Receipt Date: 20120414
  Transmission Date: 20120825
  Serious: Yes (Other)
  Sender: FDA-Public Use
  Company Number: PHHY2011CH67901

PATIENT
  Sex: Male
  Weight: 2.25 kg

DRUGS (4)
  1. LOSARTAN [Suspect]
     Dosage: 50 MG, UNK
  2. NIFEDIPINE [Concomitant]
     Dosage: UNK UKN, UNK
  3. METOPROLOL TARTRATE [Suspect]
     Dosage: UNK UKN, UNK
  4. HYDROXYCHLOROQUINE SULFATE [Concomitant]
     Dosage: UNK UKN, UNK

REACTIONS (3)
  - FOETAL EXPOSURE DURING PREGNANCY [None]
  - PREMATURE BABY [None]
  - LOW BIRTH WEIGHT BABY [None]
